FAERS Safety Report 14973800 (Version 2)
Quarter: 2018Q2

REPORT INFORMATION
  Report Type: Spontaneous
  Country: HU (occurrence: HU)
  Receive Date: 20180605
  Receipt Date: 20180619
  Transmission Date: 20180711
  Serious: Yes (Death, Hospitalization, Other)
  Sender: FDA-Public Use
  Company Number: HU-MYLANLABS-2018M1036716

PATIENT
  Age: 81 Year
  Sex: Male

DRUGS (2)
  1. LOPERAMIDE [Suspect]
     Active Substance: LOPERAMIDE
     Indication: DIARRHOEA
     Dosage: UNK
     Route: 065
     Dates: start: 2010
  2. IMATINIB [Suspect]
     Active Substance: IMATINIB
     Indication: SYSTEMIC MASTOCYTOSIS
     Dosage: 50 MG, QD
     Route: 065
     Dates: start: 2010, end: 201009

REACTIONS (17)
  - Hydrothorax [Unknown]
  - Eosinophilia [Unknown]
  - Tryptase increased [Unknown]
  - Therapy non-responder [Unknown]
  - Thrombocytopenia [Unknown]
  - Anaemia [Unknown]
  - Diarrhoea [Recovered/Resolved]
  - Death [Fatal]
  - Hepatomegaly [Unknown]
  - Blood alkaline phosphatase increased [Unknown]
  - Anaemia macrocytic [Unknown]
  - Skin disorder [Unknown]
  - Splenomegaly [Unknown]
  - Bone pain [Unknown]
  - Bone density decreased [Unknown]
  - Pruritus [Recovered/Resolved]
  - Pleural effusion [Recovered/Resolved]

NARRATIVE: CASE EVENT DATE: 2006
